FAERS Safety Report 13580205 (Version 1)
Quarter: 2017Q2

REPORT INFORMATION
  Report Type: Spontaneous
  Country: US (occurrence: US)
  Receive Date: 20170524
  Receipt Date: 20170524
  Transmission Date: 20170830
  Serious: No
  Sender: FDA-Public Use
  Company Number: None

PATIENT
  Age: 72 Year
  Sex: Female
  Weight: 78.09 kg

DRUGS (1)
  1. HUMIRA [Suspect]
     Active Substance: ADALIMUMAB
     Indication: RHEUMATOID ARTHRITIS
     Dosage: 40MG/0.8ML
     Route: 058
     Dates: start: 20170503

REACTIONS (10)
  - Tachycardia [None]
  - Asthenia [None]
  - Chills [None]
  - Pain in extremity [None]
  - Fatigue [None]
  - Contusion [None]
  - Peripheral swelling [None]
  - Pyrexia [None]
  - Decreased appetite [None]
  - Insomnia [None]
